FAERS Safety Report 7676890-6 (Version None)
Quarter: 2011Q3

REPORT INFORMATION
  Report Type: 
  Country: None (occurrence: None)
  Receive Date: 20110811
  Receipt Date: 20110804
  Transmission Date: 20111222
  Serious: Yes (Hospitalization)
  Sender: FDA-Public Use
  Company Number: PHEH2009US14267

PATIENT
  Sex: Male
  Weight: 64.853 kg

DRUGS (1)
  1. EXJADE [Suspect]
     Indication: IRON OVERLOAD
     Dosage: 250 MG, 5QD
     Route: 048
     Dates: start: 20090422, end: 20110708

REACTIONS (2)
  - SICKLE CELL ANAEMIA WITH CRISIS [None]
  - PAIN [None]
